FAERS Safety Report 11481097 (Version 1)
Quarter: 2015Q3

REPORT INFORMATION
  Report Type: Spontaneous
  Country: US (occurrence: US)
  Receive Date: 20150909
  Receipt Date: 20150909
  Transmission Date: 20151125
  Serious: No
  Sender: FDA-Public Use
  Company Number: US-JAZZ-2014-US-012878

PATIENT
  Sex: Female
  Weight: 52.15 kg

DRUGS (2)
  1. XYREM [Suspect]
     Active Substance: SODIUM OXYBATE
     Indication: CHRONIC FATIGUE SYNDROME
     Dosage: 2.25 G, BID
     Route: 048
     Dates: start: 201409, end: 20141004
  2. XYREM [Suspect]
     Active Substance: SODIUM OXYBATE
     Dosage: 3 G, BID
     Route: 048
     Dates: start: 20141005

REACTIONS (10)
  - Hypoproteinaemia [Unknown]
  - Restless legs syndrome [Unknown]
  - Poor quality sleep [Not Recovered/Not Resolved]
  - Product use issue [Unknown]
  - Anaemia [Unknown]
  - Sleep talking [Not Recovered/Not Resolved]
  - Somnolence [Recovered/Resolved]
  - Pollakiuria [Recovered/Resolved]
  - Disorientation [Unknown]
  - Rhinoplasty [Unknown]

NARRATIVE: CASE EVENT DATE: 2014
